FAERS Safety Report 8463776-2 (Version None)
Quarter: 2012Q2

REPORT INFORMATION
  Report Type: 
  Country: None (occurrence: None)
  Receive Date: 20120625
  Receipt Date: 20120612
  Transmission Date: 20120825
  Serious: No
  Sender: FDA-Public Use
  Company Number: US-ASTRAZENECA-2012SE39423

PATIENT
  Age: 81 Year
  Sex: Female

DRUGS (2)
  1. SEROQUEL [Suspect]
     Route: 048
  2. SEROQUEL [Suspect]
     Route: 048

REACTIONS (5)
  - MOOD SWINGS [None]
  - DIABETES MELLITUS [None]
  - DRUG DOSE OMISSION [None]
  - BIPOLAR DISORDER [None]
  - CONFUSIONAL STATE [None]
